FAERS Safety Report 21997569 (Version 2)
Quarter: 2023Q2

REPORT INFORMATION
  Report Type: Spontaneous
  Country: US (occurrence: US)
  Receive Date: 20230216
  Receipt Date: 20230519
  Transmission Date: 20230722
  Serious: Yes (Other)
  Sender: FDA-Public Use
  Company Number: US-ABBVIE-4309340

PATIENT
  Sex: Female

DRUGS (3)
  1. HUMIRA [Suspect]
     Active Substance: ADALIMUMAB
     Indication: Crohn^s disease
     Dosage: FORM STRENGTH: 40 MG
     Route: 058
     Dates: start: 202010, end: 20230206
  2. HUMIRA [Suspect]
     Active Substance: ADALIMUMAB
     Dosage: START DATE 2023?FORM STRENGTH: 40 MG
     Route: 058
     Dates: end: 202304
  3. SIMVASTATIN [Concomitant]
     Active Substance: SIMVASTATIN
     Indication: Blood cholesterol increased

REACTIONS (3)
  - Demyelination [Unknown]
  - Pituitary cyst [Unknown]
  - Tinnitus [Unknown]

NARRATIVE: CASE EVENT DATE: 20200101
